FAERS Safety Report 5002063-1 (Version None)
Quarter: 2006Q2

REPORT INFORMATION
  Report Type: 
  Country: None (occurrence: None)
  Receive Date: 20060515
  Receipt Date: 20060501
  Transmission Date: 20061013
  Serious: Yes (Hospitalization, Disabling)
  Sender: FDA-Public Use
  Company Number: US-MERCK-0605USA00458

PATIENT
  Sex: Female
  Weight: 127 kg

DRUGS (6)
  1. VIOXX [Suspect]
     Indication: BACK DISORDER
     Route: 048
     Dates: start: 20000101, end: 20040101
  2. DETROL [Concomitant]
     Route: 065
  3. ALTACE [Concomitant]
     Route: 065
  4. LEXAPRO [Concomitant]
     Route: 065
  5. LIPITOR [Concomitant]
     Route: 065
  6. NEXIUM [Concomitant]
     Route: 065

REACTIONS (3)
  - ANGINA PECTORIS [None]
  - BACK DISORDER [None]
  - CARDIAC DISORDER [None]
